FAERS Safety Report 10948287 (Version 3)
Quarter: 2015Q2

REPORT INFORMATION
  Report Type: Spontaneous
  Country: CN (occurrence: CN)
  Receive Date: 20150324
  Receipt Date: 20150416
  Transmission Date: 20150821
  Serious: Yes (Other)
  Sender: FDA-Public Use
  Company Number: CN-BAYER-2015-036738

PATIENT
  Sex: Male

DRUGS (3)
  1. APROVEL [Concomitant]
     Active Substance: IRBESARTAN
     Indication: HYPERTENSION
  2. GLUCOBAY [Suspect]
     Active Substance: ACARBOSE
     Indication: DIABETES MELLITUS
     Dosage: UNK
  3. GLUCOBAY [Suspect]
     Active Substance: ACARBOSE
     Indication: DIABETES MELLITUS
     Dosage: UNK

REACTIONS (2)
  - Diabetes mellitus inadequate control [None]
  - Suspected counterfeit product [None]
